FAERS Safety Report 12498973 (Version 1)
Quarter: 2016Q2

REPORT INFORMATION
  Report Type: Spontaneous
  Country: US (occurrence: US)
  Receive Date: 20160627
  Receipt Date: 20160627
  Transmission Date: 20160815
  Serious: No
  Sender: FDA-Public Use
  Company Number: US-TEVA-568939USA

PATIENT
  Age: 71 Year
  Sex: Male

DRUGS (1)
  1. LEVOFLOXACIN TABLETS, 250 MG, 500 MG AND 750 MG [Suspect]
     Active Substance: LEVOFLOXACIN
     Indication: SEPSIS
     Dates: start: 20150604

REACTIONS (3)
  - Musculoskeletal stiffness [Recovered/Resolved]
  - Dizziness [Recovered/Resolved]
  - Vision blurred [Recovered/Resolved]

NARRATIVE: CASE EVENT DATE: 20150604
